FAERS Safety Report 13999022 (Version 8)
Quarter: 2018Q2

REPORT INFORMATION
  Report Type: Report from Study
  Country: BR (occurrence: BR)
  Receive Date: 20170922
  Receipt Date: 20180618
  Transmission Date: 20180711
  Serious: Yes (Other)
  Sender: FDA-Public Use
  Company Number: BR-GLAXOSMITHKLINE-BR2017GSK144746

PATIENT
  Age: 48 Year
  Sex: Female
  Weight: 62 kg

DRUGS (11)
  1. VITAMIN B COMPLEX [Concomitant]
     Active Substance: CYANOCOBALAMIN\DEXPANTHENOL\NIACINAMIDE\PYRIDOXINE HYDROCHLORIDE\RIBOFLAVIN 5^-PHOSPHATE SODIUM\THIAMINE HYDROCHLORIDE\VITAMIN B COMPLEX
     Indication: PRODUCT USED FOR UNKNOWN INDICATION
     Dosage: UNK
  2. VITAMIN B SUBSTANCES [Concomitant]
  3. BELIMUMAB [Suspect]
     Active Substance: BELIMUMAB
     Dosage: 620 MG, CYC
     Route: 042
     Dates: start: 20160608
  4. CALCIUM [Concomitant]
     Active Substance: CALCIUM
     Indication: PRODUCT USED FOR UNKNOWN INDICATION
     Dosage: UNK
  5. BELIMUMAB [Suspect]
     Active Substance: BELIMUMAB
     Indication: SYSTEMIC LUPUS ERYTHEMATOSUS
     Dosage: UNK UNK, CYC
     Route: 042
     Dates: start: 201605
  6. VITAMIN D [Concomitant]
     Active Substance: CHOLECALCIFEROL
     Indication: PRODUCT USED FOR UNKNOWN INDICATION
     Dosage: UNK
  7. AZATIOPRINA [Concomitant]
     Active Substance: AZATHIOPRINE
     Indication: PRODUCT USED FOR UNKNOWN INDICATION
     Dosage: UNK
  8. BELIMUMAB [Suspect]
     Active Substance: BELIMUMAB
     Dosage: UNK, CYC
     Route: 042
     Dates: start: 20171116
  9. VITAMIN D [Concomitant]
     Active Substance: CHOLECALCIFEROL
  10. BELIMUMAB [Suspect]
     Active Substance: BELIMUMAB
     Dosage: UNK, CYC
     Route: 042
     Dates: start: 201708
  11. TELMISARTAN. [Concomitant]
     Active Substance: TELMISARTAN
     Indication: PRODUCT USED FOR UNKNOWN INDICATION
     Dosage: UNK

REACTIONS (9)
  - Influenza [Recovered/Resolved]
  - Herpes zoster [Recovered/Resolved]
  - Pharyngitis [Recovered/Resolved]
  - Osteoporosis [Unknown]
  - Circumstance or information capable of leading to medication error [Recovered/Resolved]
  - Depression [Unknown]
  - Diabetes mellitus [Unknown]
  - Inappropriate schedule of drug administration [Recovered/Resolved]
  - Drug dose omission [Recovered/Resolved]

NARRATIVE: CASE EVENT DATE: 20171210
